FAERS Safety Report 8813486 (Version 1)
Quarter: 2012Q4

REPORT INFORMATION
  Report Type: 
  Country: BR (occurrence: BR)
  Receive Date: 20120927
  Receipt Date: 20120927
  Transmission Date: 20130627
  Serious: Yes (Other)
  Sender: FDA-Public Use
  Company Number: BR-ROXANE LABORATORIES, INC.-2012-RO-01909RO

PATIENT
  Age: 47 Year
  Sex: Female
  Weight: 69 kg

DRUGS (7)
  1. FLUCONAZOLE [Suspect]
     Indication: CANDIDIASIS
     Dosage: 200 mg
     Route: 048
  2. DIPYRONE [Suspect]
     Indication: EVIDENCE BASED TREATMENT
     Route: 048
  3. CEFEPIME [Suspect]
     Indication: EVIDENCE BASED TREATMENT
     Route: 042
  4. CYTARABINE [Suspect]
     Indication: CHEMOTHERAPY
     Route: 042
  5. MITOXANTRONE [Suspect]
     Indication: CHEMOTHERAPY
     Route: 042
  6. 7,8-DEHYDRORETINOIC ACID, ALL TRANS- [Suspect]
     Indication: CHEMOTHERAPY
     Route: 048
  7. AMPHOTERICIN B [Suspect]
     Dosage: 30 mg
     Route: 042

REACTIONS (10)
  - Renal failure acute [Unknown]
  - Pyrexia [Unknown]
  - Hepatomegaly [Unknown]
  - Pneumonia klebsiella [Unknown]
  - Diarrhoea [Unknown]
  - Blood potassium decreased [Unknown]
  - Respiratory failure [Unknown]
  - Pulmonary haemorrhage [Unknown]
  - Mouth haemorrhage [Unknown]
  - Urethral haemorrhage [Unknown]
